FAERS Safety Report 4545007-9 (Version None)
Quarter: 2005Q1

REPORT INFORMATION
  Report Type: 
  Country: None (occurrence: None)
  Receive Date: 20050105
  Receipt Date: 20041105
  Transmission Date: 20050727
  Serious: Yes (Hospitalization)
  Sender: FDA-Public Use
  Company Number: FR-GLAXOSMITHKLINE-B0350764A

PATIENT
  Age: 27 Year
  Sex: Male
  Weight: 68 kg

DRUGS (3)
  1. ZYBAN [Suspect]
     Indication: SMOKING CESSATION THERAPY
     Dosage: 150MG UNKNOWN
     Route: 048
     Dates: start: 20040929, end: 20041029
  2. ACTISKENAN [Suspect]
     Indication: TOOTHACHE
     Dosage: 20MG PER DAY
     Route: 048
     Dates: start: 20041029, end: 20041029
  3. ACETAMINOPHEN [Concomitant]
     Indication: TOOTHACHE
     Route: 048
     Dates: start: 20041030, end: 20041030

REACTIONS (2)
  - CARDIOSPASM [None]
  - CHEST PAIN [None]
